FAERS Safety Report 4778651-4 (Version None)
Quarter: 2005Q3

REPORT INFORMATION
  Report Type: 
  Country: None (occurrence: None)
  Receive Date: 20050926
  Receipt Date: 20050912
  Transmission Date: 20060218
  Serious: Yes (Hospitalization)
  Sender: FDA-Public Use
  Company Number: FR-GLAXOSMITHKLINE-B0394020A

PATIENT
  Age: 44 Year
  Sex: Female
  Weight: 78 kg

DRUGS (5)
  1. DEROXAT [Suspect]
     Dosage: 20MG PER DAY
     Route: 048
     Dates: start: 20030101
  2. NEURONTIN [Suspect]
     Dosage: 800MG THREE TIMES PER DAY
     Route: 048
     Dates: start: 20020101
  3. REBIF [Suspect]
     Indication: MULTIPLE SCLEROSIS
     Route: 058
     Dates: start: 20020101
  4. TOPALGIC ( FRANCE ) [Concomitant]
     Route: 065
     Dates: start: 20050101
  5. CLONAZEPAM [Concomitant]
     Route: 065
     Dates: start: 20050101

REACTIONS (5)
  - BLOOD THYROID STIMULATING HORMONE INCREASED [None]
  - HYPERHIDROSIS [None]
  - HYPOGLYCAEMIA [None]
  - MALAISE [None]
  - TREMOR [None]
